FAERS Safety Report 7753813-2 (Version None)
Quarter: 2011Q3

REPORT INFORMATION
  Report Type: 
  Country: None (occurrence: None)
  Receive Date: 20110915
  Receipt Date: 20110909
  Transmission Date: 20111222
  Serious: Yes (Life-Threatening, Hospitalization)
  Sender: FDA-Public Use
  Company Number: US-MERCK-1108USA02291

PATIENT
  Age: 76 Year
  Sex: Male
  Weight: 82 kg

DRUGS (7)
  1. ALPRAZOLAM [Concomitant]
     Indication: ANXIETY
     Dosage: 0.5
     Route: 048
  2. LEXAPRO [Concomitant]
     Indication: DEPRESSION
     Dosage: 20
     Route: 048
  3. METFORMIN HCL [Suspect]
     Route: 065
     Dates: start: 20110101
  4. JANUVIA [Suspect]
     Indication: TYPE 2 DIABETES MELLITUS
     Route: 048
     Dates: start: 20110126, end: 20110713
  5. METOPROLOL [Concomitant]
     Indication: ARRHYTHMIA
     Dosage: 50
     Route: 048
  6. CRESTOR [Concomitant]
     Indication: LIPIDS
     Dosage: 5
     Route: 048
  7. MULTAQ [Concomitant]
     Indication: ARRHYTHMIA
     Dosage: 400
     Route: 048

REACTIONS (2)
  - CHOLELITHIASIS [None]
  - PANCREATITIS [None]
